FAERS Safety Report 7174826-8 (Version None)
Quarter: 2010Q4

REPORT INFORMATION
  Report Type: 
  Country: None (occurrence: None)
  Receive Date: 20101219
  Receipt Date: 20100504
  Transmission Date: 20110411
  Serious: Yes (Other)
  Sender: FDA-Public Use
  Company Number: US-AMGEN-KDL403339

PATIENT

DRUGS (13)
  1. ENBREL [Suspect]
     Indication: RHEUMATOID ARTHRITIS
     Dosage: 25 MG, 2 TIMES/WK
     Route: 058
     Dates: start: 20090701, end: 20100301
  2. METHOTREXATE [Suspect]
     Dosage: 25 MG, QWK
     Dates: start: 19990101, end: 20100401
  3. TRANDOLAPRIL [Concomitant]
     Dosage: 4 MG, UNK
  4. SILDENAFIL CITRATE [Concomitant]
     Dosage: 50 MG, UNK
  5. NAPROXEN [Concomitant]
     Dosage: 500 MG, UNK
  6. SIMVASTATIN [Concomitant]
     Dosage: 80 MG, UNK
  7. FOLIC ACID [Concomitant]
     Dosage: 1 MG, UNK
  8. TOCOPHEROL CONCENTRATE CAP [Concomitant]
     Dosage: 200 IU, UNK
  9. ALFALFA [Concomitant]
     Dosage: 500 MG, UNK
  10. MULTI-VITAMINS [Concomitant]
     Dosage: UNK UNK, UNK
  11. ACETYLSALICYLIC ACID [Concomitant]
     Dosage: 81 MG, UNK
     Route: 048
  12. VITAMIN B COMPLEX [Concomitant]
     Dosage: UNK UNK, UNK
  13. PREDNISONE [Concomitant]

REACTIONS (1)
  - CHRONIC LYMPHOCYTIC LEUKAEMIA [None]
